FAERS Safety Report 21585536 (Version 1)
Quarter: 2022Q4

REPORT INFORMATION
  Report Type: Spontaneous
  Country: NL (occurrence: NL)
  Receive Date: 20221111
  Receipt Date: 20221111
  Transmission Date: 20230113
  Serious: Yes (Other)
  Sender: FDA-Public Use
  Company Number: NL-AMGEN-NLDSP2022190539

PATIENT
  Sex: Female
  Weight: 70 kg

DRUGS (1)
  1. PROLIA [Suspect]
     Active Substance: DENOSUMAB
     Indication: Product used for unknown indication
     Dosage: SOLUTION FOR INJECTION, 60 MG/ML (MILLIGRAM PER MILLILITER)
     Route: 065
     Dates: start: 20160415

REACTIONS (2)
  - Syncope [Not Recovered/Not Resolved]
  - Pain in extremity [Not Recovered/Not Resolved]
